FAERS Safety Report 4644541-0 (Version None)
Quarter: 2005Q2

REPORT INFORMATION
  Report Type: 
  Country: None (occurrence: None)
  Receive Date: 20050331
  Receipt Date: 20041201
  Transmission Date: 20051028
  Serious: No
  Sender: FDA-Public Use
  Company Number: 04P-163-0281807-00

PATIENT
  Age: 65 Year
  Sex: Male
  Weight: 86.1834 kg

DRUGS (13)
  1. HUMIRA [Suspect]
     Indication: RHEUMATOID ARTHRITIS
     Dosage: 40 MG, 2 IN 1 M, SUBCUTANEOUS
     Route: 058
     Dates: start: 20041101
  2. MULTI-VITAMINS [Concomitant]
  3. TOCOPHEROL CONCENTRATE CAP [Concomitant]
  4. ZINC [Concomitant]
  5. SERENOA REPENS [Concomitant]
  6. GRAPE SEED [Concomitant]
  7. CALCIUM GLUCONATE [Concomitant]
  8. METHOTREXATE SODIUM [Concomitant]
  9. VOLTAREN [Concomitant]
  10. PRAVASTATIN SODIUM [Concomitant]
  11. FOLIC ACID [Concomitant]
  12. ZETIA [Concomitant]
  13. FLU SHOT [Concomitant]

REACTIONS (2)
  - COUGH [None]
  - INJECTION SITE RASH [None]
